FAERS Safety Report 17943814 (Version 6)
Quarter: 2021Q2

REPORT INFORMATION
  Report Type: Spontaneous
  Country: AT (occurrence: AT)
  Receive Date: 20200625
  Receipt Date: 20210408
  Transmission Date: 20210717
  Serious: Yes (Life-Threatening, Hospitalization, Other)
  Sender: FDA-Public Use
  Company Number: NVSC2020AT173771

PATIENT
  Age: 32 Year
  Sex: Female
  Weight: 64 kg

DRUGS (11)
  1. PREGABALIN. [Concomitant]
     Active Substance: PREGABALIN
     Indication: PRODUCT USED FOR UNKNOWN INDICATION
     Dosage: UNK UNK, QD
     Route: 048
  2. PROLIA [Concomitant]
     Active Substance: DENOSUMAB
     Indication: PRODUCT USED FOR UNKNOWN INDICATION
     Dosage: UNK UNK, QD
     Route: 065
     Dates: start: 20181017
  3. TOCILIZUMAB. [Concomitant]
     Active Substance: TOCILIZUMAB
     Indication: PRODUCT USED FOR UNKNOWN INDICATION
     Route: 065
  4. CEFPODOXIME PROXETIL. [Suspect]
     Active Substance: CEFPODOXIME PROXETIL
     Indication: PRODUCT USED FOR UNKNOWN INDICATION
     Dosage: UNK
     Route: 065
  5. ALEMTUZUMAB [Suspect]
     Active Substance: ALEMTUZUMAB
     Indication: RELAPSING-REMITTING MULTIPLE SCLEROSIS
     Dosage: 12 MG
     Route: 041
     Dates: start: 20170201, end: 20170203
  6. SERTRALINE [Concomitant]
     Active Substance: SERTRALINE HYDROCHLORIDE
     Indication: PRODUCT USED FOR UNKNOWN INDICATION
     Dosage: UNK UNK, QD
     Route: 048
  7. URBASON [Concomitant]
     Active Substance: METHYLPREDNISOLONE
     Indication: PRODUCT USED FOR UNKNOWN INDICATION
     Dosage: UNK UNK, QD
     Route: 048
  8. PANTOLOC [Concomitant]
     Active Substance: PANTOPRAZOLE SODIUM
     Indication: PRODUCT USED FOR UNKNOWN INDICATION
     Dosage: UNK UNK, QD
     Route: 048
  9. KINERET [Concomitant]
     Active Substance: ANAKINRA
     Indication: PRODUCT USED FOR UNKNOWN INDICATION
     Dosage: UNK UNK, BID
     Route: 065
  10. MAXI?KALZ [Concomitant]
     Indication: PRODUCT USED FOR UNKNOWN INDICATION
     Dosage: UNK UNK, QD
     Route: 048
  11. ALEMTUZUMAB [Suspect]
     Active Substance: ALEMTUZUMAB
     Indication: MULTIPLE SCLEROSIS
     Dosage: 12 MG, QD
     Route: 041
     Dates: start: 20160120, end: 20160124

REACTIONS (36)
  - Renal failure [Unknown]
  - Pleural effusion [Unknown]
  - Anaemia [Unknown]
  - Pyrexia [Recovered/Resolved]
  - Condition aggravated [Recovered/Resolved with Sequelae]
  - Pericardial effusion [Unknown]
  - Tobacco abuse [Unknown]
  - Natural killer cell activity decreased [Unknown]
  - Pain [Recovered/Resolved with Sequelae]
  - Hepatosplenomegaly [Recovered/Resolved with Sequelae]
  - Immature granulocyte count increased [Unknown]
  - Rash [Unknown]
  - Arthralgia [Recovered/Resolved with Sequelae]
  - Hypothyroidism [Unknown]
  - Marrow hyperplasia [Unknown]
  - Granulocyte count increased [Unknown]
  - Hypertriglyceridaemia [Unknown]
  - Sepsis [Unknown]
  - Leukocytosis [Unknown]
  - Serum ferritin increased [Recovered/Resolved with Sequelae]
  - Still^s disease [Recovering/Resolving]
  - Respiratory failure [Unknown]
  - General physical health deterioration [Unknown]
  - Bone marrow disorder [Unknown]
  - Hepatic enzyme increased [Unknown]
  - Pyrexia [Recovered/Resolved with Sequelae]
  - C-reactive protein increased [Recovered/Resolved with Sequelae]
  - Haemophagocytic lymphohistiocytosis [Recovering/Resolving]
  - Influenza [Recovered/Resolved]
  - Sleep disorder [Unknown]
  - Interleukin-2 receptor increased [Not Recovered/Not Resolved]
  - Angiopathy [Not Recovered/Not Resolved]
  - Asthenia [Recovered/Resolved]
  - Tachycardia [Recovered/Resolved with Sequelae]
  - Depression [Unknown]
  - Disorientation [Unknown]

NARRATIVE: CASE EVENT DATE: 201809
